FAERS Safety Report 7144927-9 (Version None)
Quarter: 2010Q4

REPORT INFORMATION
  Report Type: 
  Country: None (occurrence: None)
  Receive Date: 20101208
  Receipt Date: 20101203
  Transmission Date: 20110411
  Serious: No
  Sender: FDA-Public Use
  Company Number: US-ROXANE LABORATORIES, INC.-2010-RO-01585RO

PATIENT
  Sex: Male

DRUGS (2)
  1. FLUTICASONE PROPIONATE [Suspect]
     Indication: SNORING
     Route: 045
     Dates: end: 20101201
  2. AREDS [Concomitant]

REACTIONS (3)
  - DYSGEUSIA [None]
  - HYPOGEUSIA [None]
  - TONGUE DISCOLOURATION [None]
